FAERS Safety Report 5929886-6 (Version None)
Quarter: 2008Q4

REPORT INFORMATION
  Report Type: 
  Country: None (occurrence: None)
  Receive Date: 20081021
  Receipt Date: 20081009
  Transmission Date: 20090506
  Serious: Yes (Hospitalization)
  Sender: FDA-Public Use
  Company Number: 2008BI017662

PATIENT
  Age: 61 Year
  Sex: Female
  Weight: 61.2356 kg

DRUGS (14)
  1. AVONEX [Suspect]
     Indication: MULTIPLE SCLEROSIS
     Dosage: 30 UG;QW;IM
     Route: 030
     Dates: start: 20010618, end: 20030101
  2. AVONEX [Suspect]
     Indication: MULTIPLE SCLEROSIS
     Dosage: 30 UG;QW;IM
     Route: 030
     Dates: start: 20030101
  3. ASPIRIN [Concomitant]
  4. NORVASC [Concomitant]
  5. WELLBUTRIN [Concomitant]
  6. 5-HYDROXY [Concomitant]
  7. VITAMINS [Concomitant]
  8. 4-AMINOPYRIDINE [Concomitant]
  9. BUPROPION HCL [Concomitant]
  10. VANCOMYCIN HCL [Concomitant]
  11. DOXYCYCLINE [Concomitant]
  12. DARVOCET [Concomitant]
  13. LEVAQUIN [Concomitant]
  14. PREV MES [Concomitant]

REACTIONS (21)
  - ASPARTATE AMINOTRANSFERASE INCREASED [None]
  - CEREBELLAR SYNDROME [None]
  - CLONUS [None]
  - DECUBITUS ULCER [None]
  - DEEP VEIN THROMBOSIS [None]
  - DIARRHOEA [None]
  - DYSPHAGIA [None]
  - DYSPHONIA [None]
  - GASTRITIS BACTERIAL [None]
  - INJECTION SITE INFECTION [None]
  - KLEBSIELLA INFECTION [None]
  - MALNUTRITION [None]
  - MULTIPLE SCLEROSIS [None]
  - ONYCHOMYCOSIS [None]
  - PARESIS [None]
  - PNEUMONIA ASPIRATION [None]
  - PROGRESSIVE MULTIPLE SCLEROSIS [None]
  - RADICULOPATHY [None]
  - SEPSIS [None]
  - SPUTUM CULTURE POSITIVE [None]
  - STAPHYLOCOCCAL INFECTION [None]
